FAERS Safety Report 4697243-9 (Version None)
Quarter: 2005Q2

REPORT INFORMATION
  Report Type: 
  Country: None (occurrence: None)
  Receive Date: 20050622
  Receipt Date: 20050301
  Transmission Date: 20051028
  Serious: Yes (Life-Threatening, Hospitalization, Disabling)
  Sender: FDA-Public Use
  Company Number: US-SANOFI-SYNTHELABO-F01200500354

PATIENT
  Sex: Male
  Weight: 80.5 kg

DRUGS (11)
  1. OXALIPLATIN [Suspect]
     Indication: COLORECTAL CANCER METASTATIC
     Route: 042
     Dates: start: 20050222, end: 20050222
  2. FLUOROURACIL [Suspect]
     Dosage: 2400 MG/M2 IV ON DAY 1 AND DAY 2, Q2W
     Route: 042
     Dates: start: 20050222, end: 20050224
  3. LEUCOVORIN [Suspect]
     Route: 042
     Dates: start: 20050222, end: 20050222
  4. BEVACIZUMAB [Suspect]
     Route: 042
     Dates: start: 20050222, end: 20050222
  5. CA/MG OR PLACEBO [Suspect]
     Route: 042
     Dates: start: 20050222, end: 20050224
  6. OXYCONTIN [Concomitant]
     Indication: ABDOMINAL PAIN
     Dosage: UNK
     Route: 065
     Dates: start: 20050224
  7. DILAUDID [Concomitant]
     Indication: ABDOMINAL PAIN
     Dosage: UNK
     Route: 065
     Dates: start: 20050224
  8. WARFARIN SODIUM [Concomitant]
     Indication: PROPHYLAXIS
     Dosage: UNK
     Route: 065
     Dates: start: 20050120
  9. LISINOPRIL [Concomitant]
     Indication: HYPERTENSION
     Dosage: UNK
     Route: 065
     Dates: start: 20000101
  10. ATENOLOL [Concomitant]
     Indication: HYPERTENSION
     Dosage: UNK
     Route: 065
     Dates: start: 20000101
  11. LITHIUM [Concomitant]
     Indication: BIPOLAR DISORDER

REACTIONS (25)
  - ADRENAL INSUFFICIENCY [None]
  - ATRIAL FIBRILLATION [None]
  - BLOOD CALCIUM DECREASED [None]
  - BLOOD CREATININE INCREASED [None]
  - BLOOD POTASSIUM INCREASED [None]
  - CARDIOGENIC SHOCK [None]
  - DEHYDRATION [None]
  - DRUG TOXICITY [None]
  - GASTROINTESTINAL HAEMORRHAGE [None]
  - HAEMATEMESIS [None]
  - HAEMOGLOBIN DECREASED [None]
  - HEART RATE INCREASED [None]
  - HEPATIC FAILURE [None]
  - HYPOTENSION [None]
  - HYPOVOLAEMIA [None]
  - HYPOXIA [None]
  - INTESTINAL ADHESION LYSIS [None]
  - INTESTINAL ISCHAEMIA [None]
  - INTESTINAL PERFORATION [None]
  - INTESTINAL ULCER [None]
  - LUNG CONSOLIDATION [None]
  - PERITONITIS [None]
  - SEPSIS [None]
  - SHOCK [None]
  - SMALL INTESTINAL OBSTRUCTION [None]
